FAERS Safety Report 23358951 (Version 3)
Quarter: 2024Q1

REPORT INFORMATION
  Report Type: Report from Study
  Country: CA (occurrence: None)
  Receive Date: 20240102
  Receipt Date: 20240129
  Transmission Date: 20240410
  Serious: Yes (Hospitalization, Other)
  Sender: FDA-Public Use
  Company Number: 2024A001067

PATIENT
  Sex: Female

DRUGS (6)
  1. TEZSPIRE [Suspect]
     Active Substance: TEZEPELUMAB-EKKO
     Indication: Asthma
     Route: 058
     Dates: start: 20231101
  2. SYMBICORT [Suspect]
     Active Substance: BUDESONIDE\FORMOTEROL FUMARATE DIHYDRATE
     Dosage: 200/6 II TID, UNKNOWN UNKNOWN
     Route: 055
  3. PULMICORT RESPULES [Suspect]
     Active Substance: BUDESONIDE
     Dosage: 25 2-3X/WEEK NEBS
     Route: 055
  4. PREDNISONE [Concomitant]
     Active Substance: PREDNISONE
     Dosage: 5MG EVERY OTHER DAY
  5. VENTOLIN [Concomitant]
     Active Substance: ALBUTEROL SULFATE
  6. ATROVENT [Concomitant]
     Active Substance: IPRATROPIUM BROMIDE
     Dosage: 20MCG II OD

REACTIONS (5)
  - Dizziness [Unknown]
  - Haemorrhage [Unknown]
  - Gastrointestinal ulcer [Unknown]
  - Fall [Unknown]
  - Joint instability [Unknown]
